FAERS Safety Report 15405670 (Version 1)
Quarter: 2018Q3

REPORT INFORMATION
  Report Type: Spontaneous
  Country: US (occurrence: US)
  Receive Date: 20180920
  Receipt Date: 20180920
  Transmission Date: 20181010
  Serious: Yes (Death, Hospitalization, Other)
  Sender: FDA-Public Use
  Company Number: US-ZYDUS-026937

PATIENT
  Age: 29 Year
  Sex: Female

DRUGS (3)
  1. NIFEDIPINE. [Suspect]
     Active Substance: NIFEDIPINE
     Indication: PRODUCT USED FOR UNKNOWN INDICATION
     Route: 065
  2. AMLODIPINE [Suspect]
     Active Substance: AMLODIPINE BESYLATE
     Indication: PRODUCT USED FOR UNKNOWN INDICATION
     Route: 065
  3. METOPROLOL. [Suspect]
     Active Substance: METOPROLOL
     Indication: PRODUCT USED FOR UNKNOWN INDICATION
     Route: 065

REACTIONS (13)
  - Anion gap abnormal [Unknown]
  - Hepatotoxicity [Unknown]
  - Haemolysis [Unknown]
  - Respiratory depression [Unknown]
  - Metabolic acidosis [Unknown]
  - Bradycardia [Unknown]
  - Depressed level of consciousness [Unknown]
  - Death [Fatal]
  - Toxicity to various agents [Unknown]
  - Ventricular arrhythmia [Unknown]
  - Hypotension [Unknown]
  - Hypoglycaemia [Unknown]
  - Seizure [Unknown]
